FAERS Safety Report 6383047-8 (Version None)
Quarter: 2009Q3

REPORT INFORMATION
  Report Type: 
  Country: None (occurrence: None)
  Receive Date: 20090930
  Receipt Date: 20090916
  Transmission Date: 20100115
  Serious: Yes (Hospitalization)
  Sender: FDA-Public Use
  Company Number: JP-GENENTECH-290984

PATIENT

DRUGS (4)
  1. AVASTIN [Suspect]
     Indication: RECTAL CANCER
     Dosage: 5 MG/KG, Q2W
     Route: 041
     Dates: end: 20090911
  2. IRINOTECAN HYDROCHLORIDE [Suspect]
     Indication: RECTAL CANCER
     Dosage: UNK
     Route: 041
     Dates: end: 20090911
  3. FLUOROURACIL [Suspect]
     Indication: RECTAL CANCER
     Dosage: UNK
     Route: 041
     Dates: end: 20090911
  4. CALCIUM LEVOFOLINATE [Suspect]
     Indication: RECTAL CANCER
     Dosage: UNK
     Route: 041
     Dates: end: 20090911

REACTIONS (1)
  - LEUKOENCEPHALOPATHY [None]
